FAERS Safety Report 13783242 (Version 2)
Quarter: 2017Q3

REPORT INFORMATION
  Report Type: Report from Study
  Country: JP (occurrence: JP)
  Receive Date: 20170724
  Receipt Date: 20170905
  Transmission Date: 20171127
  Serious: Yes (Other)
  Sender: FDA-Public Use
  Company Number: JP-BAYER-2017-115633

PATIENT
  Age: 72 Year
  Sex: Female
  Weight: 53.2 kg

DRUGS (2)
  1. STIVARGA [Suspect]
     Active Substance: REGORAFENIB
     Indication: GASTRIC CANCER
     Dosage: 3TABLETS DAILY
     Route: 048
     Dates: start: 20170607, end: 20170612
  2. STIVARGA [Suspect]
     Active Substance: REGORAFENIB
     Indication: GASTRIC CANCER
     Dosage: 4TABLETS DAILY
     Route: 048
     Dates: start: 20170531, end: 20170606

REACTIONS (6)
  - Cerebral infarction [Not Recovered/Not Resolved]
  - Hypertension [Recovering/Resolving]
  - Hypoaesthesia [Not Recovered/Not Resolved]
  - Palmar-plantar erythrodysaesthesia syndrome [Recovering/Resolving]
  - Gait disturbance [Not Recovered/Not Resolved]
  - Fall [Not Recovered/Not Resolved]

NARRATIVE: CASE EVENT DATE: 20170531
